FAERS Safety Report 8577589-4 (Version None)
Quarter: 2012Q3

REPORT INFORMATION
  Report Type: 
  Country: None (occurrence: None)
  Receive Date: 20120807
  Receipt Date: 20120728
  Transmission Date: 20120928
  Serious: Yes (Death, Hospitalization)
  Sender: FDA-Public Use
  Company Number: US-MUTUAL PHARMACEUTICAL COMPANY, INC.-CLHC20120040

PATIENT
  Age: 48 Year
  Sex: Male

DRUGS (3)
  1. INDOMETHACIN [Concomitant]
     Indication: PRODUCT USED FOR UNKNOWN INDICATION
     Route: 065
  2. IBUPROFEN TABLETS [Suspect]
     Indication: PRODUCT USED FOR UNKNOWN INDICATION
     Route: 048
  3. COLCHICINE [Suspect]
     Indication: PRODUCT USED FOR UNKNOWN INDICATION
     Route: 065

REACTIONS (17)
  - DEPRESSED LEVEL OF CONSCIOUSNESS [None]
  - DEHYDRATION [None]
  - INTERNATIONAL NORMALISED RATIO INCREASED [None]
  - ASPARTATE AMINOTRANSFERASE INCREASED [None]
  - ABDOMINAL PAIN [None]
  - PLATELET COUNT DECREASED [None]
  - BLOOD CREATININE INCREASED [None]
  - VOMITING [None]
  - TROPONIN INCREASED [None]
  - LETHARGY [None]
  - DIARRHOEA HAEMORRHAGIC [None]
  - OVERDOSE [None]
  - HYPOTENSION [None]
  - HYPORESPONSIVE TO STIMULI [None]
  - BLOOD UREA INCREASED [None]
  - ALANINE AMINOTRANSFERASE INCREASED [None]
  - WHITE BLOOD CELL COUNT INCREASED [None]
